FAERS Safety Report 13825390 (Version 1)
Quarter: 2017Q3

REPORT INFORMATION
  Report Type: Spontaneous
  Country: FR (occurrence: FR)
  Receive Date: 20170802
  Receipt Date: 20170802
  Transmission Date: 20171127
  Serious: Yes (Hospitalization, Other)
  Sender: FDA-Public Use
  Company Number: FR-GILEAD-2017-0286041

PATIENT
  Age: 71 Year
  Sex: Male

DRUGS (1)
  1. HARVONI [Suspect]
     Active Substance: LEDIPASVIR\SOFOSBUVIR
     Indication: CHRONIC HEPATITIS C
     Dosage: 1 DF, UNK
     Route: 048
     Dates: start: 201509, end: 201512

REACTIONS (3)
  - Drug ineffective [Unknown]
  - Hepatocellular carcinoma [Recovered/Resolved]
  - Hepatitis C [Unknown]

NARRATIVE: CASE EVENT DATE: 201601
